FAERS Safety Report 14624527 (Version 1)
Quarter: 2018Q1

REPORT INFORMATION
  Report Type: Spontaneous
  Country: US (occurrence: US)
  Receive Date: 20180311
  Receipt Date: 20180311
  Transmission Date: 20180509
  Serious: Yes (Disabling, Other)
  Sender: FDA-Public Use
  Company Number: None

PATIENT
  Age: 66 Year
  Sex: Female

DRUGS (1)
  1. BASAGLAR [Suspect]
     Active Substance: INSULIN GLARGINE
     Indication: TYPE 2 DIABETES MELLITUS
     Dosage: 5X3ML PREFILLED PENS ML 5 INJECTION(S); DAILY; SUBCUTANEOUS?          ?
     Route: 058
     Dates: start: 20180116, end: 20180310

REACTIONS (13)
  - Rash pruritic [None]
  - Inability to afford medication [None]
  - Oedema [None]
  - Pruritus generalised [None]
  - Cough [None]
  - Weight increased [None]
  - Pain in extremity [None]
  - Diabetes mellitus inadequate control [None]
  - Rash erythematous [None]
  - Blood glucose increased [None]
  - Therapeutic response shortened [None]
  - Abdominal pain [None]
  - Product substitution issue [None]

NARRATIVE: CASE EVENT DATE: 20180201
